FAERS Safety Report 26141643 (Version 1)
Quarter: 2025Q4

REPORT INFORMATION
  Report Type: Spontaneous
  Country: US (occurrence: US)
  Receive Date: 20251210
  Receipt Date: 20251210
  Transmission Date: 20260117
  Serious: No
  Sender: NOVARTIS
  Company Number: US-002147023-NVSC2025US188179

PATIENT
  Age: 62 Year
  Sex: Male

DRUGS (1)
  1. INCLISIRAN [Suspect]
     Active Substance: INCLISIRAN
     Indication: Hypercholesterolaemia
     Dosage: 284 MG (LOADING DOSES DAY 1 AND DAY 90; MAINTENANCE EVERY 6MONTHS THEREAFTER)
     Route: 058
     Dates: start: 20251127

REACTIONS (2)
  - Respiratory symptom [Recovered/Resolved]
  - Dyspnoea [Recovered/Resolved]

NARRATIVE: CASE EVENT DATE: 20251127
